FAERS Safety Report 6265451-1 (Version None)
Quarter: 2009Q3

REPORT INFORMATION
  Report Type: 
  Country: None (occurrence: None)
  Receive Date: 20090713
  Receipt Date: 20090701
  Transmission Date: 20100115
  Serious: Yes (Other)
  Sender: FDA-Public Use
  Company Number: CL-PFIZER INC-2009234776

PATIENT

DRUGS (2)
  1. GENOTONORM [Suspect]
     Dosage: UNK MBQ, 1X/DAY
     Route: 051
     Dates: start: 20010612, end: 20090301
  2. EUTIROX [Concomitant]
     Indication: HYPOTHYROIDISM
     Dosage: 50 UG, UNK
     Route: 048

REACTIONS (1)
  - PARTIAL SEIZURES [None]
